FAERS Safety Report 10408771 (Version 2)
Quarter: 2014Q3

REPORT INFORMATION
  Report Type: Spontaneous
  Country: US (occurrence: US)
  Receive Date: 20140826
  Receipt Date: 20140910
  Transmission Date: 20150326
  Serious: Yes (Other)
  Sender: FDA-Public Use
  Company Number: US-JNJFOC-20140818313

PATIENT
  Age: 76 Year
  Sex: Female
  Weight: 90.72 kg

DRUGS (1)
  1. SIMPONI [Suspect]
     Active Substance: GOLIMUMAB
     Indication: PSORIATIC ARTHROPATHY
     Route: 058
     Dates: start: 2013

REACTIONS (7)
  - Ligament rupture [Unknown]
  - Joint dislocation [Unknown]
  - Drug dose omission [Unknown]
  - Accidental exposure to product [Unknown]
  - Fall [Recovered/Resolved]
  - Syringe issue [Unknown]
  - Device malfunction [Unknown]

NARRATIVE: CASE EVENT DATE: 201406
